FAERS Safety Report 4421366-2 (Version None)
Quarter: 2004Q3

REPORT INFORMATION
  Report Type: 
  Country: None (occurrence: None)
  Receive Date: 20040707
  Receipt Date: 20040518
  Transmission Date: 20050211
  Serious: Yes (Hospitalization)
  Sender: FDA-Public Use
  Company Number: 354325

PATIENT
  Age: 40 Year
  Sex: Male
  Weight: 90.7 kg

DRUGS (8)
  1. FUZEON [Suspect]
     Indication: HIV INFECTION
     Dosage: 90 MG 2 PER DAY SUBCUTANEOUS
     Route: 058
     Dates: start: 20030630
  2. SUSTIVA [Concomitant]
  3. VIRACEPT [Concomitant]
  4. NEURONTIN [Concomitant]
  5. VALIUM [Concomitant]
  6. SONATA [Concomitant]
  7. PANCRELIPASE (AMYLASE/LIPASE/PROTEINASE) [Concomitant]
  8. VITAMIN B COMPLEX (VITAMIN B COMPLEX) [Concomitant]

REACTIONS (8)
  - ABDOMINAL DISTENSION [None]
  - ABDOMINAL PAIN [None]
  - ABDOMINAL REBOUND TENDERNESS [None]
  - BLOOD TRIGLYCERIDES INCREASED [None]
  - CONSTIPATION [None]
  - GASTRIC DILATATION [None]
  - PANCREATIC DISORDER [None]
  - PANCREATITIS CHRONIC [None]
